FAERS Safety Report 25698022 (Version 1)
Quarter: 2025Q3

REPORT INFORMATION
  Report Type: Spontaneous
  Country: EU (occurrence: EU)
  Receive Date: 20250819
  Receipt Date: 20250819
  Transmission Date: 20251021
  Serious: Yes (Other)
  Sender: AUROBINDO
  Company Number: EU-AUROBINDO-AUR-APL-2025-041958

PATIENT
  Age: 25 Day
  Sex: Female

DRUGS (2)
  1. FLECAINIDE [Suspect]
     Active Substance: FLECAINIDE
     Indication: Supraventricular tachycardia
     Dosage: 3.3 MILLIGRAM/KILOGRAM, ONCE A DAY
     Route: 048
  2. PROPRANOLOL [Suspect]
     Active Substance: PROPRANOLOL HYDROCHLORIDE
     Indication: Supraventricular tachycardia
     Dosage: 2.8 MILLIGRAM/KILOGRAM, ONCE A DAY
     Route: 065

REACTIONS (6)
  - Electrocardiogram QT prolonged [Unknown]
  - Electrocardiogram PR prolongation [Unknown]
  - Irritability [Unknown]
  - Dyspnoea [Unknown]
  - Disease recurrence [Unknown]
  - Toxicity to various agents [Unknown]
